FAERS Safety Report 11551673 (Version 1)
Quarter: 2015Q3

REPORT INFORMATION
  Report Type: Spontaneous
  Country: US (occurrence: US)
  Receive Date: 20150903
  Receipt Date: 20150903
  Transmission Date: 20151125
  Serious: No
  Sender: FDA-Public Use
  Company Number: US-ELI_LILLY_AND_COMPANY-US200712002163

PATIENT

DRUGS (11)
  1. CYMBALTA [Concomitant]
     Active Substance: DULOXETINE HYDROCHLORIDE
  2. LISINOPRIL. [Concomitant]
     Active Substance: LISINOPRIL
  3. TOPROL XL [Concomitant]
     Active Substance: METOPROLOL SUCCINATE
  4. SIMVASTATIN. [Concomitant]
     Active Substance: SIMVASTATIN
  5. CALCIUM [Concomitant]
     Active Substance: CALCIUM
  6. HUMALOG [Suspect]
     Active Substance: INSULIN LISPRO
     Indication: DIABETES MELLITUS
     Dosage: UNK, OTHER
  7. LEVOXYL [Concomitant]
     Active Substance: LEVOTHYROXINE SODIUM
  8. LANTUS [Concomitant]
     Active Substance: INSULIN GLARGINE
  9. MULTIVITAMINS [Concomitant]
     Active Substance: VITAMINS
  10. ZETIA [Concomitant]
     Active Substance: EZETIMIBE
  11. BONIVA [Concomitant]
     Active Substance: IBANDRONATE SODIUM

REACTIONS (2)
  - Arthritis [Not Recovered/Not Resolved]
  - Injection site pain [Unknown]

NARRATIVE: CASE EVENT DATE: 2005
